FAERS Safety Report 8399973-4 (Version None)
Quarter: 2012Q2

REPORT INFORMATION
  Report Type: 
  Country: None (occurrence: None)
  Receive Date: 20120531
  Receipt Date: 20120522
  Transmission Date: 20120825
  Serious: Yes (Other)
  Sender: FDA-Public Use
  Company Number: JP-BRISTOL-MYERS SQUIBB COMPANY-16454803

PATIENT
  Age: 57 Year
  Sex: Female

DRUGS (2)
  1. IRINOTECAN HCL [Concomitant]
     Indication: RECTAL CANCER
     Route: 042
  2. ERBITUX [Suspect]
     Indication: RECTAL CANCER
     Route: 042

REACTIONS (2)
  - ABSCESS [None]
  - SMALL INTESTINAL PERFORATION [None]
